FAERS Safety Report 21688259 (Version 1)
Quarter: 2022Q4

REPORT INFORMATION
  Report Type: Spontaneous
  Country: US (occurrence: None)
  Receive Date: 20221205
  Receipt Date: 20221205
  Transmission Date: 20230112
  Serious: No
  Sender: FDA-Public Use
  Company Number: None

PATIENT
  Sex: 0

DRUGS (2)
  1. BUPROPION [Suspect]
     Active Substance: BUPROPION
  2. Slate Run Bupropion [Concomitant]

REACTIONS (2)
  - Drug hypersensitivity [None]
  - Product substitution issue [None]
